FAERS Safety Report 6139401-2 (Version None)
Quarter: 2009Q2

REPORT INFORMATION
  Report Type: 
  Country: None (occurrence: None)
  Receive Date: 20090401
  Receipt Date: 20090320
  Transmission Date: 20091009
  Serious: Yes (Other)
  Sender: FDA-Public Use
  Company Number: IN-PFIZER INC-2009187910

PATIENT

DRUGS (7)
  1. MAGNEX [Suspect]
     Indication: DIABETIC FOOT
     Dosage: 1 G, 3X/DAY
     Dates: start: 20090316, end: 20090318
  2. DALACIN [Suspect]
     Indication: DIABETIC FOOT
     Dosage: 600 MG, 2X/DAY
     Dates: start: 20090316, end: 20090318
  3. HUMINSULIN PROFIL I [Concomitant]
     Route: 065
  4. PANTOPRAZOLE [Concomitant]
     Route: 065
  5. ACECLOFENAC [Concomitant]
     Route: 065
  6. ZOLPIDEM [Concomitant]
     Route: 065
  7. CILOSTAZOL [Concomitant]
     Route: 065

REACTIONS (3)
  - ERYTHEMA [None]
  - RASH [None]
  - RASH MACULO-PAPULAR [None]
